FAERS Safety Report 11142832 (Version 1)
Quarter: 2015Q2

REPORT INFORMATION
  Report Type: Spontaneous
  Country: DE (occurrence: DE)
  Receive Date: 20150528
  Receipt Date: 20150528
  Transmission Date: 20150821
  Serious: Yes (Life-Threatening, Hospitalization)
  Sender: FDA-Public Use
  Company Number: DE-MYLANLABS-2015M1017411

PATIENT

DRUGS (6)
  1. VANCOMYCIN [Concomitant]
     Active Substance: VANCOMYCIN
     Indication: EVIDENCE BASED TREATMENT
     Route: 065
  2. CYTARABINE. [Suspect]
     Active Substance: CYTARABINE
     Indication: ACUTE MYELOID LEUKAEMIA
     Dosage: 100 MG/M2 ON DAYS 1-7
     Route: 041
  3. PIPERACILLIN AND TAZOBACTAM [Concomitant]
     Active Substance: PIPERACILLIN SODIUM\TAZOBACTAM SODIUM
     Indication: ATYPICAL PNEUMONIA
     Route: 065
  4. DAUNORUBICIN [Concomitant]
     Active Substance: DAUNORUBICIN
     Indication: ACUTE MYELOID LEUKAEMIA
     Dosage: 60 MG/M2 ON DAYS 3-5
     Route: 042
  5. IMIPENEM [Concomitant]
     Active Substance: IMIPENEM
     Indication: EVIDENCE BASED TREATMENT
     Route: 065
  6. CYTARABINE. [Suspect]
     Active Substance: CYTARABINE
     Dosage: ON DAYS 1, 3, AND 5
     Route: 042

REACTIONS (2)
  - Cardiogenic shock [Recovered/Resolved]
  - Stress cardiomyopathy [Recovered/Resolved]
